FAERS Safety Report 15422402 (Version 1)
Quarter: 2018Q3

REPORT INFORMATION
  Report Type: Spontaneous
  Country: TR (occurrence: TR)
  Receive Date: 20180925
  Receipt Date: 20180925
  Transmission Date: 20181010
  Serious: Yes (Hospitalization, Other)
  Sender: FDA-Public Use
  Company Number: TR-INGENUS PHARMACEUTICALS NJ, LLC-ING201809-000954

PATIENT
  Age: 17 Year
  Sex: Female

DRUGS (1)
  1. PROBENECID AND COLCHICINE [Suspect]
     Active Substance: COLCHICINE\PROBENECID
     Dosage: 0.27 MG/KG (30 TABLETS)

REACTIONS (17)
  - Oliguria [Unknown]
  - Pain [Unknown]
  - Thrombocytopenia [Unknown]
  - Nausea [Unknown]
  - Vomiting [Unknown]
  - Blood lactate dehydrogenase increased [Unknown]
  - Toxicity to various agents [Unknown]
  - Leukopenia [Unknown]
  - Alopecia [Unknown]
  - Overdose [Unknown]
  - Leukocytosis [Unknown]
  - Pyrexia [Unknown]
  - Diarrhoea [Unknown]
  - Blood creatine phosphokinase increased [Unknown]
  - Septic shock [Unknown]
  - Hypovolaemic shock [Unknown]
  - Liver function test increased [Unknown]
